FAERS Safety Report 12744098 (Version 2)
Quarter: 2016Q3

REPORT INFORMATION
  Report Type: Spontaneous
  Country: FR (occurrence: FR)
  Receive Date: 20160914
  Receipt Date: 20160916
  Transmission Date: 20161109
  Serious: Yes (Other)
  Sender: FDA-Public Use
  Company Number: FR-ALLERGAN-1668613US

PATIENT
  Age: 45 Year
  Sex: Female

DRUGS (2)
  1. ESMYA [Suspect]
     Active Substance: ULIPRISTAL ACETATE
     Indication: UTERINE LEIOMYOMA
     Dosage: UNK
  2. ESMYA [Suspect]
     Active Substance: ULIPRISTAL ACETATE
     Indication: MENORRHAGIA

REACTIONS (1)
  - Sarcoma uterus [Recovered/Resolved]
